FAERS Safety Report 14001822 (Version 1)
Quarter: 2017Q3

REPORT INFORMATION
  Report Type: Spontaneous
  Country: US (occurrence: US)
  Receive Date: 20170922
  Receipt Date: 20170922
  Transmission Date: 20171128
  Serious: No
  Sender: FDA-Public Use
  Company Number: US-JNJFOC-20170903813

PATIENT
  Sex: Female
  Weight: 65.8 kg

DRUGS (5)
  1. LIPITOR [Concomitant]
     Active Substance: ATORVASTATIN CALCIUM
     Route: 048
  2. LEXAPRO [Concomitant]
     Active Substance: ESCITALOPRAM OXALATE
     Route: 048
  3. XARELTO [Suspect]
     Active Substance: RIVAROXABAN
     Indication: ATRIAL FIBRILLATION
     Route: 048
  4. XARELTO [Suspect]
     Active Substance: RIVAROXABAN
     Indication: CEREBROVASCULAR ACCIDENT
     Route: 048
  5. TYLENOL [Concomitant]
     Active Substance: ACETAMINOPHEN
     Dosage: AS NEEDED
     Route: 048

REACTIONS (10)
  - Arthralgia [Unknown]
  - Fall [Unknown]
  - Cough [Unknown]
  - Back pain [Unknown]
  - Memory impairment [Unknown]
  - Concussion [Unknown]
  - Insomnia [Unknown]
  - Eye contusion [Unknown]
  - Depression [Unknown]
  - Increased tendency to bruise [Unknown]
